FAERS Safety Report 6589142-2 (Version None)
Quarter: 2010Q1

REPORT INFORMATION
  Report Type: 
  Country: None (occurrence: None)
  Receive Date: 20100218
  Receipt Date: 20100215
  Transmission Date: 20100710
  Serious: Yes (Life-Threatening, Hospitalization)
  Sender: FDA-Public Use
  Company Number: PHHO2010GB00675

PATIENT
  Sex: Male
  Weight: 70 kg

DRUGS (3)
  1. TASIGNA [Suspect]
     Indication: CHRONIC MYELOID LEUKAEMIA
     Dosage: 400 MG
     Route: 048
     Dates: start: 20051117, end: 20100112
  2. TASIGNA [Suspect]
     Dosage: NO TREATMENT
     Dates: start: 20100113, end: 20100203
  3. TASIGNA [Suspect]
     Dosage: UNK
     Route: 048
     Dates: start: 20100204

REACTIONS (8)
  - ACUTE MYOCARDIAL INFARCTION [None]
  - BLOOD PH INCREASED [None]
  - CARDIAC FAILURE [None]
  - CORONARY ARTERY STENOSIS [None]
  - DYSPNOEA [None]
  - HAEMOGLOBIN DECREASED [None]
  - LOWER RESPIRATORY TRACT INFECTION [None]
  - PULMONARY OEDEMA [None]
